FAERS Safety Report 7595038-X (Version None)
Quarter: 2011Q2

REPORT INFORMATION
  Report Type: 
  Country: None (occurrence: None)
  Receive Date: 20110628
  Receipt Date: 20110613
  Transmission Date: 20111010
  Serious: Yes (Disabling, Other)
  Sender: FDA-Public Use
  Company Number: TPA2011A03126

PATIENT
  Age: 60 Year
  Sex: Male
  Weight: 89.8122 kg

DRUGS (8)
  1. MICARDIS [Concomitant]
  2. PRANDIN (DEFLAZACORT) [Concomitant]
  3. NIASPAN [Concomitant]
  4. ASPIRIN [Concomitant]
  5. ACTOS [Suspect]
     Indication: TYPE 2 DIABETES MELLITUS
     Dosage: 45 MG, 1 IN 1 D, PER ORAL
     Route: 048
  6. VYTORIN [Concomitant]
  7. METFORMIN HCL [Concomitant]
  8. LANTUS [Concomitant]

REACTIONS (4)
  - PATELLA FRACTURE [None]
  - PROSTATE CANCER [None]
  - FEMUR FRACTURE [None]
  - FALL [None]
